FAERS Safety Report 5652235-8 (Version None)
Quarter: 2008Q1

REPORT INFORMATION
  Report Type: 
  Country: None (occurrence: None)
  Receive Date: 20080305
  Receipt Date: 20080211
  Transmission Date: 20080703
  Serious: No
  Sender: FDA-Public Use
  Company Number: US-BOEHRINGER INGELHEIM GMBH, GERMANY-2007-BP-02972BP

PATIENT
  Age: 49 Year
  Sex: Female

DRUGS (4)
  1. SPIRIVA [Suspect]
     Indication: CHRONIC OBSTRUCTIVE PULMONARY DISEASE
     Route: 055
  2. ADVAIR DISKUS 100/50 [Concomitant]
  3. ACIPHEX [Concomitant]
  4. NEURONTIN [Concomitant]

REACTIONS (4)
  - CHOKING [None]
  - DYSPNOEA [None]
  - LUNG NEOPLASM [None]
  - THROAT IRRITATION [None]
